FAERS Safety Report 18596255 (Version 1)
Quarter: 2020Q4

REPORT INFORMATION
  Report Type: Spontaneous
  Country: US (occurrence: US)
  Receive Date: 20201209
  Receipt Date: 20201209
  Transmission Date: 20210114
  Serious: No
  Sender: FDA-Public Use
  Company Number: None

PATIENT
  Age: 32 Year
  Sex: Male

DRUGS (1)
  1. DUPIXENT [Suspect]
     Active Substance: DUPILUMAB
     Indication: NASAL POLYPS
     Dosage: ?          OTHER ROUTE:UNDER THE SKIN?
     Route: 058
     Dates: start: 201911

REACTIONS (2)
  - Device defective [None]
  - Intentional dose omission [None]

NARRATIVE: CASE EVENT DATE: 202011
